FAERS Safety Report 9603371 (Version 2)
Quarter: 2013Q4

REPORT INFORMATION
  Report Type: Spontaneous
  Country: GR (occurrence: GR)
  Receive Date: 20131007
  Receipt Date: 20131007
  Transmission Date: 20140711
  Serious: Yes (Hospitalization, Other)
  Sender: FDA-Public Use
  Company Number: GR-009507513-1211GRC006784

PATIENT
  Age: 73 Year
  Sex: Female

DRUGS (5)
  1. FOSAMAX [Suspect]
     Indication: OSTEOPOROSIS
     Dosage: UNK
     Route: 048
     Dates: start: 1999, end: 2006
  2. RISEDRONATE SODIUM [Suspect]
     Dosage: UNK
     Dates: start: 2006, end: 2011
  3. STRONTIUM RANELATE [Suspect]
     Dosage: UNK
     Dates: start: 2011, end: 2012
  4. CALCIUM (UNSPECIFIED) [Concomitant]
     Indication: OSTEOPOROSIS
  5. VITAMIN D (UNSPECIFIED) [Concomitant]
     Indication: OSTEOPOROSIS

REACTIONS (6)
  - Femur fracture [Recovered/Resolved]
  - Femur fracture [Recovered/Resolved]
  - Bone pain [Recovered/Resolved]
  - Bone pain [Recovered/Resolved]
  - Intramedullary rod insertion [Unknown]
  - Intramedullary rod insertion [Unknown]
